FAERS Safety Report 4428806-3 (Version None)
Quarter: 2004Q3

REPORT INFORMATION
  Report Type: 
  Country: None (occurrence: None)
  Receive Date: 20040818
  Receipt Date: 20040628
  Transmission Date: 20050211
  Serious: Yes (Other)
  Sender: FDA-Public Use
  Company Number: US-GLAXOSMITHKLINE-A0516231A

PATIENT
  Age: 50 Year
  Sex: Female

DRUGS (6)
  1. PAXIL [Suspect]
     Indication: DEPRESSION
     Dosage: 25MG PER DAY
     Route: 048
     Dates: start: 20010101
  2. IRON [Concomitant]
  3. Q-10 [Concomitant]
  4. VITAMIN B COMPLEX CAP [Concomitant]
  5. GINGKO [Concomitant]
  6. GINSENG [Concomitant]

REACTIONS (7)
  - ANXIETY [None]
  - CRYING [None]
  - DEPENDENCE [None]
  - DEPRESSED MOOD [None]
  - EMOTIONAL DISTRESS [None]
  - HEADACHE [None]
  - INSOMNIA [None]
